FAERS Safety Report 8976563 (Version 1)
Quarter: 2012Q4

REPORT INFORMATION
  Report Type: 
  Country: US (occurrence: US)
  Receive Date: 20121220
  Receipt Date: 20121220
  Transmission Date: 20130627
  Serious: Yes (Other)
  Sender: FDA-Public Use
  Company Number: CHPA2012US025110

PATIENT
  Age: 12 Year
  Sex: Male

DRUGS (1)
  1. DESENEX PRESCRIPTIONSTRENGTH ANTIFPOWDER [Suspect]
     Indication: TINEA PEDIS
     Dosage: UNK, UNK
     Route: 061

REACTIONS (5)
  - Asthma [Not Recovered/Not Resolved]
  - Application site pustules [Not Recovered/Not Resolved]
  - Application site swelling [Not Recovered/Not Resolved]
  - Application site discolouration [Not Recovered/Not Resolved]
  - Application site erythema [Not Recovered/Not Resolved]
